FAERS Safety Report 20487340 (Version 5)
Quarter: 2022Q3

REPORT INFORMATION
  Report Type: Report from Study
  Country: CH (occurrence: CH)
  Receive Date: 20220217
  Receipt Date: 20220902
  Transmission Date: 20221026
  Serious: Yes (Hospitalization)
  Sender: FDA-Public Use
  Company Number: CH-ABBVIE-22K-151-4279463-00

PATIENT
  Age: 73 Year
  Sex: Male

DRUGS (4)
  1. CARBIDOPA\LEVODOPA [Suspect]
     Active Substance: CARBIDOPA\LEVODOPA
     Indication: Parkinson^s disease
     Route: 050
     Dates: start: 20180702
  2. CARBIDOPA\LEVODOPA [Suspect]
     Active Substance: CARBIDOPA\LEVODOPA
     Dosage: MD: 7 ML, CRD: 2.3 ML/H, CRN: 1.2 ML/H, ED: 2 ML, 24H THERAPY
     Route: 050
     Dates: start: 20220214, end: 20220811
  3. CARBIDOPA\LEVODOPA [Suspect]
     Active Substance: CARBIDOPA\LEVODOPA
     Dosage: MD: 7 ML, CRD: 2.3 ML/H, CRN: 1.2 ML/H, ED: 2 ML
     Route: 050
     Dates: start: 20220811
  4. KEPPRA [Concomitant]
     Active Substance: LEVETIRACETAM
     Indication: Epilepsy

REACTIONS (9)
  - Ileostomy [Recovered/Resolved]
  - Dyskinesia [Recovered/Resolved]
  - Device loosening [Unknown]
  - Gastrooesophageal reflux disease [Unknown]
  - Freezing phenomenon [Unknown]
  - Stoma site hypergranulation [Unknown]
  - Stoma site discharge [Unknown]
  - Stoma site erythema [Unknown]
  - Stoma site infection [Not Recovered/Not Resolved]

NARRATIVE: CASE EVENT DATE: 20211221
